FAERS Safety Report 5963256-X (Version None)
Quarter: 2008Q4

REPORT INFORMATION
  Report Type: 
  Country: None (occurrence: None)
  Receive Date: 20081119
  Receipt Date: 20080826
  Transmission Date: 20090506
  Serious: No
  Sender: FDA-Public Use
  Company Number: WAES 0807USA02121

PATIENT
  Age: 70 Year
  Sex: Male
  Weight: 138.8007 kg

DRUGS (13)
  1. JANUVIA [Suspect]
     Indication: TYPE 2 DIABETES MELLITUS
     Dosage: 100 MG/DAILY/PO
     Route: 048
  2. ATIVAN [Concomitant]
  3. BENICAR [Concomitant]
  4. GAS-X [Concomitant]
  5. LASIX [Concomitant]
  6. PAXIL [Concomitant]
  7. TYLENOL (CAPLET) [Concomitant]
  8. ASPIRIN [Concomitant]
  9. FOLIC ACID [Concomitant]
  10. GLUCOSAMINE [Concomitant]
  11. METFORMIN HCL [Concomitant]
  12. TERAZOSIN HYDROCHLORIDE [Concomitant]
  13. VITAMIN B COMPLEX CAP [Concomitant]

REACTIONS (4)
  - NASOPHARYNGITIS [None]
  - POSTNASAL DRIP [None]
  - PRODUCTIVE COUGH [None]
  - RHINORRHOEA [None]
